FAERS Safety Report 9891932 (Version 3)
Quarter: 2014Q2

REPORT INFORMATION
  Report Type: Spontaneous
  Country: JP (occurrence: JP)
  Receive Date: 20140212
  Receipt Date: 20140403
  Transmission Date: 20141212
  Serious: Yes (Death)
  Sender: FDA-Public Use
  Company Number: JP-GLAXOSMITHKLINE-B0967704A

PATIENT
  Age: 7 Decade
  Sex: 0

DRUGS (6)
  1. ARZERRA [Suspect]
     Indication: CHRONIC LYMPHOCYTIC LEUKAEMIA
     Dosage: 300MG PER DAY
     Route: 042
     Dates: start: 20140206, end: 20140206
  2. ADRENAL HORMONE PREPARATION [Concomitant]
     Route: 065
     Dates: start: 20140206, end: 20140206
  3. ANTIPYRETICS [Concomitant]
     Route: 065
     Dates: start: 20140206, end: 20140206
  4. ANTIHISTAMINES [Concomitant]
     Route: 065
     Dates: start: 20140206, end: 20140206
  5. ANALGESICS [Concomitant]
  6. ANTI-INFLAMMATORY [Concomitant]

REACTIONS (5)
  - Tumour lysis syndrome [Recovered/Resolved]
  - Disease progression [Fatal]
  - Dyspnoea [Recovered/Resolved]
  - Pyrexia [Recovered/Resolved]
  - Lymphocyte count decreased [Unknown]
